FAERS Safety Report 9112271 (Version 1)
Quarter: 2013Q1

REPORT INFORMATION
  Report Type: Spontaneous
  Country: US (occurrence: US)
  Receive Date: 20130219
  Receipt Date: 20130219
  Transmission Date: 20140127
  Serious: No
  Sender: FDA-Public Use
  Company Number: US-BRISTOL-MYERS SQUIBB COMPANY-17043555

PATIENT
  Age: 67 Year
  Sex: Female
  Weight: 49.89 kg

DRUGS (6)
  1. ABATACEPT SUBQ INJECTION 125MG/ML [Suspect]
     Indication: RHEUMATOID ARTHRITIS
     Dosage: PRESCRIPTION #:  0404324-11057?ORENCIA SUBQ?LASTINF:09OCT2012
     Route: 058
     Dates: start: 2011
  2. LEVOTHYROXINE [Concomitant]
  3. VITAMIN D3 [Concomitant]
  4. CALCIUM [Concomitant]
  5. IBUPROFEN [Concomitant]
  6. CARAFATE [Concomitant]

REACTIONS (4)
  - Headache [Not Recovered/Not Resolved]
  - Nausea [Not Recovered/Not Resolved]
  - Retching [Not Recovered/Not Resolved]
  - Contusion [Unknown]
